FAERS Safety Report 8541987-5 (Version None)
Quarter: 2012Q3

REPORT INFORMATION
  Report Type: 
  Country: None (occurrence: None)
  Receive Date: 20120726
  Receipt Date: 20111004
  Transmission Date: 20120928
  Serious: No
  Sender: FDA-Public Use
  Company Number: US-ASTRAZENECA-2011SE59694

PATIENT
  Age: 48 Year
  Sex: Male
  Weight: 68 kg

DRUGS (3)
  1. SEROQUEL XR [Suspect]
     Dosage: 150 MILLIGRAM, TWO TABLETS, ONCE AT NIGHT
     Route: 048
  2. SEROQUEL XR [Suspect]
     Indication: HALLUCINATION, AUDITORY
     Route: 048
  3. CELEXA [Concomitant]
     Indication: DEPRESSION

REACTIONS (3)
  - DIZZINESS [None]
  - SOMNOLENCE [None]
  - OFF LABEL USE [None]
